FAERS Safety Report 4398088-X (Version None)
Quarter: 2004Q3

REPORT INFORMATION
  Report Type: 
  Country: None (occurrence: None)
  Receive Date: 20040714
  Receipt Date: 20040714
  Transmission Date: 20050211
  Serious: Yes (Life-Threatening, Hospitalization, Disabling)
  Sender: FDA-Public Use
  Company Number: None

PATIENT
  Age: 15 Year
  Sex: Male
  Weight: 65.7716 kg

DRUGS (1)
  1. PAXIL [Suspect]
     Indication: ANTIDEPRESSANT THERAPY
     Dates: start: 20021128, end: 20030815

REACTIONS (3)
  - AGGRESSION [None]
  - INTENTIONAL SELF-INJURY [None]
  - SUICIDE ATTEMPT [None]
